FAERS Safety Report 4414977-1 (Version None)
Quarter: 2004Q3

REPORT INFORMATION
  Report Type: 
  Country: None (occurrence: None)
  Receive Date: 20040803
  Receipt Date: 20040803
  Transmission Date: 20050211
  Serious: Yes (Other)
  Sender: FDA-Public Use
  Company Number: None

PATIENT
  Sex: Male
  Weight: 109.3169 kg

DRUGS (7)
  1. ZYPREXA [Suspect]
     Indication: BIPOLAR DISORDER
     Dosage: 20MG  QHS  ORAL
     Route: 048
     Dates: start: 20040721, end: 20040802
  2. ZYPREXA [Suspect]
     Indication: INSOMNIA
     Dosage: 20MG  QHS  ORAL
     Route: 048
     Dates: start: 20040721, end: 20040802
  3. ACETAMINOPHEN [Concomitant]
  4. BUSPIRONE [Concomitant]
  5. DEPAKOTE [Concomitant]
  6. OMEPRAZOLE [Concomitant]
  7. WARFARIN SODIUM [Concomitant]

REACTIONS (2)
  - BRADYKINESIA [None]
  - DYSTONIA [None]
